FAERS Safety Report 22720903 (Version 3)
Quarter: 2025Q1

REPORT INFORMATION
  Report Type: Report from Study
  Country: US (occurrence: US)
  Receive Date: 20230719
  Receipt Date: 20250106
  Transmission Date: 20250409
  Serious: Yes (Other)
  Sender: TAKEDA
  Company Number: US-TAKEDA-2023TUS035887

PATIENT
  Age: 35 Year
  Sex: Male

DRUGS (2)
  1. RECOMBINATE [Suspect]
     Active Substance: ANTIHEMOPHILIC FACTOR, HUMAN RECOMBINANT
     Indication: Haemorrhage
     Dosage: 2500 INTERNATIONAL UNIT, TID
  2. RECOMBINATE [Suspect]
     Active Substance: ANTIHEMOPHILIC FACTOR, HUMAN RECOMBINANT

REACTIONS (5)
  - Haemarthrosis [Recovered/Resolved]
  - Head injury [Unknown]
  - Road traffic accident [Unknown]
  - Contusion [Unknown]
  - Mass [Unknown]

NARRATIVE: CASE EVENT DATE: 20230323
